FAERS Safety Report 9272711 (Version 1)
Quarter: 2013Q2

REPORT INFORMATION
  Report Type: Spontaneous
  Country: US (occurrence: US)
  Receive Date: 20130506
  Receipt Date: 20130506
  Transmission Date: 20140414
  Serious: No
  Sender: FDA-Public Use
  Company Number: US-ASTRAZENECA-2012SE23677

PATIENT
  Sex: Female

DRUGS (6)
  1. PRILOSEC OTC [Suspect]
     Dosage: 1 TABLET, 1 /DAY FOR THE PAST 3-4 YEARS
     Route: 048
  2. DIFLUCAN [Interacting]
     Indication: CANDIDA INFECTION
     Route: 065
  3. FLAGYL [Concomitant]
     Indication: BACTERIAL INFECTION
     Dosage: UNKNOWN
  4. NYSTATIN [Concomitant]
     Indication: CANDIDA INFECTION
     Dosage: UNKNOWN
  5. LORAZEPAM [Concomitant]
     Dosage: UNKNOWN
  6. CIPRO [Concomitant]
     Dosage: UNKNOWN

REACTIONS (10)
  - Labelled drug-drug interaction medication error [Unknown]
  - Dyspnoea [Not Recovered/Not Resolved]
  - Chest discomfort [Not Recovered/Not Resolved]
  - Abdominal distension [Not Recovered/Not Resolved]
  - Lymphadenopathy [Not Recovered/Not Resolved]
  - Dysphagia [Not Recovered/Not Resolved]
  - Flatulence [Not Recovered/Not Resolved]
  - Eructation [Not Recovered/Not Resolved]
  - Nausea [Not Recovered/Not Resolved]
  - Drug ineffective [Unknown]
